FAERS Safety Report 24112846 (Version 3)
Quarter: 2024Q4

REPORT INFORMATION
  Report Type: Spontaneous
  Country: US (occurrence: US)
  Receive Date: 20240719
  Receipt Date: 20241009
  Transmission Date: 20250114
  Serious: No
  Sender: ABBVIE
  Company Number: US-ABBVIE-5836504

PATIENT
  Age: 33 Year
  Sex: Female
  Weight: 72 kg

DRUGS (4)
  1. BOTOX [Suspect]
     Active Substance: ONABOTULINUMTOXINA
     Indication: Migraine prophylaxis
     Dosage: TIME INTERVAL: AS NECESSARY: FREQUENCY WAS EVERY 3 MONTHS
     Route: 030
     Dates: start: 2016, end: 2016
  2. SUMATRIPTAN [Suspect]
     Active Substance: SUMATRIPTAN
     Indication: Migraine
     Dosage: TIME INTERVAL: AS NECESSARY
     Route: 048
  3. SUMATRIPTAN [Suspect]
     Active Substance: SUMATRIPTAN
     Indication: Migraine
     Dosage: TIME INTERVAL: AS NECESSARY
     Route: 058
  4. NAPROXEN [Suspect]
     Active Substance: NAPROXEN
     Indication: Migraine
     Dosage: TIME INTERVAL: AS NECESSARY: DRUG DISCONTINUED
     Route: 048
     Dates: end: 202402

REACTIONS (1)
  - Maternal exposure during pregnancy [Unknown]
